FAERS Safety Report 21371440 (Version 1)
Quarter: 2022Q3

REPORT INFORMATION
  Report Type: Spontaneous
  Country: US (occurrence: None)
  Receive Date: 20220922
  Receipt Date: 20220922
  Transmission Date: 20221027
  Serious: No
  Sender: FDA-Public Use
  Company Number: None

PATIENT
  Age: 71 Year
  Sex: Male
  Weight: 61.23 kg

DRUGS (3)
  1. TERIPARATIDE [Suspect]
     Active Substance: TERIPARATIDE
     Indication: Dermatitis atopic
     Dosage: OTHER STRENGTH : 620/2.48 UG/ML;?FREQUENCY : DAILY;?
     Route: 058
     Dates: start: 202205
  2. TERIPARATIDE [Suspect]
     Active Substance: TERIPARATIDE
     Indication: Eczema nummular
  3. TERIPARATIDE [Suspect]
     Active Substance: TERIPARATIDE
     Indication: Senile osteoporosis

REACTIONS (1)
  - Pneumonia [None]
